FAERS Safety Report 18820186 (Version 4)
Quarter: 2021Q1

REPORT INFORMATION
  Report Type: Spontaneous
  Country: PL (occurrence: PL)
  Receive Date: 20210202
  Receipt Date: 20210325
  Transmission Date: 20210419
  Serious: Yes (Hospitalization, Other)
  Sender: FDA-Public Use
  Company Number: PL-AUROBINDO-AUR-APL-2021-004489

PATIENT
  Age: 54 Year
  Sex: Male

DRUGS (9)
  1. PARACETAMOL;PSEUDOEPHEDRINE [Suspect]
     Active Substance: ACETAMINOPHEN\PSEUDOEPHEDRINE
     Indication: PYREXIA
     Dosage: UNK
     Route: 065
  2. PHENYTOIN. [Interacting]
     Active Substance: PHENYTOIN
     Indication: EPILEPSY
     Dosage: UNK
     Route: 065
  3. PARACETAMOL [Suspect]
     Active Substance: ACETAMINOPHEN
     Indication: PYREXIA
     Dosage: UNK
     Route: 065
  4. PARACETAMOL [Interacting]
     Active Substance: ACETAMINOPHEN
     Indication: HEADACHE
  5. PARACETAMOL;PSEUDOEPHEDRINE [Suspect]
     Active Substance: ACETAMINOPHEN\PSEUDOEPHEDRINE
     Indication: OROPHARYNGEAL PAIN
  6. PARACETAMOL;PSEUDOEPHEDRINE [Suspect]
     Active Substance: ACETAMINOPHEN\PSEUDOEPHEDRINE
     Indication: HEADACHE
  7. PARACETAMOL [Interacting]
     Active Substance: ACETAMINOPHEN
     Indication: RHINORRHOEA
  8. PARACETAMOL;PSEUDOEPHEDRINE [Suspect]
     Active Substance: ACETAMINOPHEN\PSEUDOEPHEDRINE
     Indication: RHINORRHOEA
  9. PARACETAMOL [Interacting]
     Active Substance: ACETAMINOPHEN
     Indication: OROPHARYNGEAL PAIN

REACTIONS (10)
  - Acute hepatic failure [Recovered/Resolved]
  - Hepatomegaly [Recovered/Resolved]
  - Encephalopathy [Recovered/Resolved]
  - International normalised ratio increased [Recovered/Resolved]
  - Disorganised speech [Recovered/Resolved]
  - Jaundice [Recovered/Resolved]
  - Disorientation [Recovered/Resolved]
  - Drug interaction [Unknown]
  - Coagulopathy [Recovered/Resolved]
  - Thrombocytopenia [Recovered/Resolved]
